FAERS Safety Report 7669268-2 (Version None)
Quarter: 2011Q3

REPORT INFORMATION
  Report Type: 
  Country: None (occurrence: None)
  Receive Date: 20110808
  Receipt Date: 20110803
  Transmission Date: 20111222
  Serious: Yes (Death)
  Sender: FDA-Public Use
  Company Number: TN-SANOFI-AVENTIS-2011SA049732

PATIENT
  Age: 68 Year
  Sex: Male

DRUGS (5)
  1. MONICOR [Concomitant]
     Route: 048
     Dates: end: 20101001
  2. CORVASAL [Concomitant]
     Route: 048
     Dates: end: 20101001
  3. PLAVIX [Suspect]
     Indication: ACUTE CORONARY SYNDROME
     Route: 048
     Dates: start: 20100703, end: 20101001
  4. PLAVIX [Suspect]
     Route: 048
     Dates: start: 20100703, end: 20101001
  5. DILTIAZEM HCL [Concomitant]
     Route: 048
     Dates: end: 20101001

REACTIONS (1)
  - DEATH [None]
